FAERS Safety Report 5676870-6 (Version None)
Quarter: 2008Q1

REPORT INFORMATION
  Report Type: 
  Country: None (occurrence: None)
  Receive Date: 20080324
  Receipt Date: 20080312
  Transmission Date: 20080703
  Serious: Yes (Other)
  Sender: FDA-Public Use
  Company Number: JP-MERCK-0803USA02394

PATIENT
  Age: 67 Year
  Sex: Male

DRUGS (6)
  1. PEPCID RPD [Suspect]
     Route: 048
     Dates: start: 20071217, end: 20080303
  2. LOXONIN [Suspect]
     Route: 048
     Dates: end: 20080303
  3. DEPAS [Suspect]
     Route: 048
  4. SIMVASTATIN [Suspect]
     Route: 048
     Dates: start: 20080104
  5. GASMOTIN [Suspect]
     Route: 048
     Dates: start: 20071220
  6. PARIET [Concomitant]
     Route: 048
     Dates: start: 20080104

REACTIONS (1)
  - INTERSTITIAL LUNG DISEASE [None]
